FAERS Safety Report 16678437 (Version 1)
Quarter: 2019Q3

REPORT INFORMATION
  Report Type: Spontaneous
  Country: KR (occurrence: KR)
  Receive Date: 20190807
  Receipt Date: 20190807
  Transmission Date: 20191004
  Serious: Yes (Other)
  Sender: FDA-Public Use
  Company Number: KR-EISAI MEDICAL RESEARCH-EC-2019-060074

PATIENT
  Age: 82 Year
  Sex: Female

DRUGS (1)
  1. ARICEPT [Suspect]
     Active Substance: DONEPEZIL HYDROCHLORIDE
     Indication: DEMENTIA ALZHEIMER^S TYPE
     Route: 048
     Dates: start: 2018, end: 201810

REACTIONS (2)
  - Large intestine perforation [Recovered/Resolved with Sequelae]
  - Intestinal fistula [Recovered/Resolved with Sequelae]

NARRATIVE: CASE EVENT DATE: 2018
